FAERS Safety Report 6246238-2 (Version None)
Quarter: 2009Q2

REPORT INFORMATION
  Report Type: 
  Country: None (occurrence: None)
  Receive Date: 20090626
  Receipt Date: 20090617
  Transmission Date: 20091009
  Serious: Yes (Other)
  Sender: FDA-Public Use
  Company Number: US-JNJFOC-20090606677

PATIENT
  Sex: Male
  Weight: 88.45 kg

DRUGS (9)
  1. REMICADE [Suspect]
     Indication: PSORIASIS
     Route: 042
  2. REMICADE [Suspect]
     Indication: PSORIATIC ARTHROPATHY
     Dosage: ON DRUG 4-5 YEARS
     Route: 042
  3. AVINZA [Concomitant]
     Indication: PAIN
  4. HYDROMORPHONE [Concomitant]
     Indication: PAIN
  5. VYVANSE [Concomitant]
     Indication: ATTENTION DEFICIT/HYPERACTIVITY DISORDER
  6. PANTOPRAZOLE SODIUM [Concomitant]
     Indication: ANTACID THERAPY
  7. MELOXICAM [Concomitant]
     Indication: ARTHRITIS
  8. PROVIGIL [Concomitant]
  9. VYTORIN [Concomitant]
     Dosage: DOSE IS ^10/20^ DAILY

REACTIONS (4)
  - BLOOD TESTOSTERONE DECREASED [None]
  - FATIGUE [None]
  - SPERM COUNT DECREASED [None]
  - WEIGHT INCREASED [None]
